FAERS Safety Report 7659718-X (Version None)
Quarter: 2011Q3

REPORT INFORMATION
  Report Type: 
  Country: None (occurrence: None)
  Receive Date: 20110805
  Receipt Date: 20101102
  Transmission Date: 20111222
  Serious: Yes (Other)
  Sender: FDA-Public Use
  Company Number: US-ABBOTT-10P-163-0680056-00

PATIENT
  Sex: Male

DRUGS (1)
  1. DEPAKOTE ER [Suspect]
     Indication: CONVULSION
     Dosage: 1500 MG DAILY

REACTIONS (3)
  - AMMONIA INCREASED [None]
  - CONVULSION [None]
  - ANTICONVULSANT DRUG LEVEL INCREASED [None]
